FAERS Safety Report 14354606 (Version 1)
Quarter: 2018Q1

REPORT INFORMATION
  Report Type: Spontaneous
  Country: US (occurrence: US)
  Receive Date: 20180104
  Receipt Date: 20180104
  Transmission Date: 20180509
  Serious: No
  Sender: FDA-Public Use
  Company Number: None

PATIENT
  Age: 29 Year
  Sex: Female

DRUGS (1)
  1. TALTZ [Suspect]
     Active Substance: IXEKIZUMAB
     Indication: RASH PAPULOSQUAMOUS
     Route: 058
     Dates: start: 20171218

REACTIONS (1)
  - Palpitations [None]

NARRATIVE: CASE EVENT DATE: 20180103
